FAERS Safety Report 16462398 (Version 1)
Quarter: 2019Q2

REPORT INFORMATION
  Report Type: Spontaneous
  Country: NL (occurrence: NL)
  Receive Date: 20190621
  Receipt Date: 20190621
  Transmission Date: 20190711
  Serious: Yes (Hospitalization)
  Sender: FDA-Public Use
  Company Number: NL-PFIZER INC-2019259986

PATIENT
  Age: 48 Year
  Sex: Female
  Weight: 72.9 kg

DRUGS (5)
  1. OMEPRAZOLE. [Concomitant]
     Active Substance: OMEPRAZOLE
     Dosage: 40 MG, 1X/DAY
  2. DEXAMETHASONE. [Concomitant]
     Active Substance: DEXAMETHASONE
     Dosage: 1 MG, 1X/DAY (1DD2 (THIS WAS GRADUALLY REDUCED FROM 2 DD 2 MG, STARTED ON 21MAR2019))
     Dates: start: 20190321
  3. METRONIDAZOLE. [Concomitant]
     Active Substance: METRONIDAZOLE
     Dosage: 500 MG, CYCLIC (EVERY 8 HRS: AT 8, 14, 22)
     Route: 048
  4. PARACETAMOL [Concomitant]
     Active Substance: ACETAMINOPHEN
     Dosage: 1 DF, UNK (1-3DD2 AS NEEDED)
  5. MERONEM [Suspect]
     Active Substance: MEROPENEM
     Indication: BRAIN ABSCESS
     Dosage: 2 G, 3X/DAY
     Dates: start: 20190428, end: 20190516

REACTIONS (5)
  - Hypersensitivity [Unknown]
  - Headache [Unknown]
  - Rash maculo-papular [Recovering/Resolving]
  - Nausea [Recovered/Resolved]
  - Arthralgia [Recovered/Resolved]

NARRATIVE: CASE EVENT DATE: 20190515
